FAERS Safety Report 7578712-0 (Version None)
Quarter: 2011Q2

REPORT INFORMATION
  Report Type: 
  Country: None (occurrence: None)
  Receive Date: 20110628
  Receipt Date: 20110617
  Transmission Date: 20111010
  Serious: Yes (Hospitalization, Other)
  Sender: FDA-Public Use
  Company Number: US-BAXTER-2011BH019628

PATIENT
  Age: 59 Year
  Sex: Female

DRUGS (7)
  1. DIANEAL [Suspect]
     Route: 033
     Dates: start: 20100501, end: 20110601
  2. DIANEAL [Suspect]
     Indication: PERITONEAL DIALYSIS
     Route: 033
     Dates: start: 20110601, end: 20110617
  3. DIANEAL [Suspect]
     Indication: PERITONEAL DIALYSIS
     Route: 033
     Dates: start: 20110617
  4. DIANEAL [Suspect]
     Indication: RENAL FAILURE CHRONIC
     Route: 033
     Dates: start: 20110617
  5. EPOGEN [Concomitant]
     Indication: HAEMOGLOBIN DECREASED
  6. DIANEAL [Suspect]
     Indication: RENAL FAILURE CHRONIC
     Route: 033
     Dates: start: 20110601, end: 20110617
  7. DIANEAL [Suspect]
     Route: 033
     Dates: start: 20100501, end: 20110601

REACTIONS (5)
  - CHEST PAIN [None]
  - HAEMORRHOIDS [None]
  - HAEMOGLOBIN DECREASED [None]
  - GASTRITIS [None]
  - DIVERTICULITIS [None]
